FAERS Safety Report 9084645 (Version 1)
Quarter: 2013Q1

REPORT INFORMATION
  Report Type: Spontaneous
  Country: US (occurrence: US)
  Receive Date: 20130130
  Receipt Date: 20130130
  Transmission Date: 20140127
  Serious: Yes (Hospitalization)
  Sender: FDA-Public Use
  Company Number: US-ELI_LILLY_AND_COMPANY-US201301002197

PATIENT
  Sex: Male
  Weight: 85.71 kg

DRUGS (20)
  1. ADCIRCA [Suspect]
     Indication: PULMONARY HYPERTENSION
     Dosage: 20 MG, BID
     Route: 048
     Dates: start: 20121221
  2. AVODART [Concomitant]
     Dosage: 0.5 MG, UNK
  3. BUMETANIDE [Concomitant]
     Dosage: 1 MG, UNK
  4. CALCIUM +VIT D [Concomitant]
  5. VITAMIN B12 [Concomitant]
     Dosage: 1000 UG, UNK
  6. DOXAZOSIN [Concomitant]
     Dosage: 1 MG, UNK
  7. ETODOLAC [Concomitant]
     Dosage: 400 MG, UNK
  8. FOLIC ACID [Concomitant]
  9. GLUCOTROL [Concomitant]
     Dosage: 10 MG, UNK
  10. HYDROXYZINE [Concomitant]
     Dosage: 25 MG, UNK
  11. HYZAAR [Concomitant]
  12. LASIX [Concomitant]
     Dosage: 40 MG, UNK
  13. LEVEMIR [Concomitant]
  14. LOVASTATIN [Concomitant]
     Dosage: 40 MG, UNK
  15. METFORMIN [Concomitant]
     Dosage: 1000 MG, UNK
  16. MULTIVITAMIN [Concomitant]
  17. OXYGEN [Concomitant]
  18. PREDNISONE [Concomitant]
     Dosage: 10 MG, UNK
  19. PRILOSEC [Concomitant]
  20. VESICARE [Concomitant]
     Dosage: 5 MG, UNK

REACTIONS (4)
  - Dyspnoea [Recovering/Resolving]
  - Hypoxia [Recovering/Resolving]
  - Exercise tolerance decreased [Recovering/Resolving]
  - Pulmonary hypertension [Recovering/Resolving]
